FAERS Safety Report 6691336-2 (Version None)
Quarter: 2010Q2

REPORT INFORMATION
  Report Type: 
  Country: None (occurrence: None)
  Receive Date: 20100422
  Receipt Date: 20100412
  Transmission Date: 20101027
  Serious: Yes (Other)
  Sender: FDA-Public Use
  Company Number: GB-BAXTER-2010BH009568

PATIENT
  Age: 5 Year
  Sex: Male
  Weight: 21 kg

DRUGS (5)
  1. IMMUNE GLOBULIN INTRAVENOUS (HUMAN) [Suspect]
     Indication: DRUG USE FOR UNKNOWN INDICATION
     Route: 042
     Dates: start: 20100321, end: 20100321
  2. ASPIRIN [Concomitant]
     Route: 048
     Dates: start: 20100321
  3. CHLORAL HYDRATE [Concomitant]
     Indication: SEDATION
     Route: 048
     Dates: start: 20100319, end: 20100319
  4. IBUPROFEN [Concomitant]
     Indication: PYREXIA
     Route: 048
     Dates: start: 20100319
  5. PARACETAMOL [Concomitant]
     Indication: PYREXIA
     Route: 048
     Dates: start: 20100319

REACTIONS (7)
  - AGITATION [None]
  - ALOPECIA [None]
  - BODY TEMPERATURE INCREASED [None]
  - CHILLS [None]
  - LIVEDO RETICULARIS [None]
  - PRURITUS [None]
  - RASH [None]
